FAERS Safety Report 10474542 (Version 2)
Quarter: 2014Q3

REPORT INFORMATION
  Report Type: Report from Study
  Country: US (occurrence: US)
  Receive Date: 20140924
  Receipt Date: 20140924
  Transmission Date: 20150326
  Serious: Yes (Other)
  Sender: FDA-Public Use
  Company Number: US-ALEXION PHARMACEUTICALS INC-A200700309

PATIENT
  Sex: Male

DRUGS (2)
  1. NEUPOGEN [Concomitant]
     Active Substance: FILGRASTIM
     Indication: PRODUCT USED FOR UNKNOWN INDICATION
     Dosage: UNK, WEEKLY
  2. SOLIRIS [Suspect]
     Active Substance: ECULIZUMAB
     Indication: PAROXYSMAL NOCTURNAL HAEMOGLOBINURIA
     Dosage: UNK
     Route: 042
     Dates: start: 2007

REACTIONS (5)
  - Fatigue [Not Recovered/Not Resolved]
  - Transfusion [Recovered/Resolved]
  - Platelet transfusion [Not Recovered/Not Resolved]
  - Haemoglobin decreased [Unknown]
  - Haematuria [Recovering/Resolving]

NARRATIVE: CASE EVENT DATE: 200804
